FAERS Safety Report 5938415-2 (Version None)
Quarter: 2008Q4

REPORT INFORMATION
  Report Type: 
  Country: None (occurrence: None)
  Receive Date: 20081103
  Receipt Date: 20081023
  Transmission Date: 20090506
  Serious: Yes (Hospitalization, Disabling, Other)
  Sender: FDA-Public Use
  Company Number: DE-ASTRAZENECA-2006PK00334

PATIENT
  Age: 23130 Day
  Sex: Male

DRUGS (9)
  1. ZD1839 [Suspect]
     Indication: HEAD AND NECK CANCER
     Dosage: CONCOMITANT AND MAINTAINANCE THERAPY
     Route: 048
     Dates: start: 20060104
  2. CISPLATIN [Suspect]
     Indication: HEAD AND NECK CANCER
     Dates: start: 20060111
  3. CISPLATIN [Suspect]
     Dates: start: 20060131
  4. RADIOTHERAPY [Suspect]
     Indication: HEAD AND NECK CANCER
     Dosage: 0.2 GY PER DAY
     Dates: start: 20060110, end: 20060113
  5. RADIOTHERAPY [Suspect]
     Dosage: 0.2 GY PER DAY
     Dates: start: 20060116, end: 20060120
  6. RADIOTHERAPY [Suspect]
     Dosage: 0.2 GY PER DAY
     Dates: start: 20060123, end: 20060127
  7. RADIOTHERAPY [Suspect]
     Dosage: 0.2 GY PER DAY
     Dates: start: 20060130, end: 20060203
  8. RADIOTHERAPY [Suspect]
     Dosage: 0.2 GY PER DAY
     Dates: start: 20060206, end: 20060210
  9. RAMIPRIL [Concomitant]
     Route: 048

REACTIONS (1)
  - BLOOD CREATININE INCREASED [None]
